FAERS Safety Report 7569704-6 (Version None)
Quarter: 2011Q2

REPORT INFORMATION
  Report Type: 
  Country: None (occurrence: None)
  Receive Date: 20110624
  Receipt Date: 20110622
  Transmission Date: 20111010
  Serious: No
  Sender: FDA-Public Use
  Company Number: US-PFIZER INC-2011139331

PATIENT
  Age: 71 Year
  Sex: Female
  Weight: 60.771 kg

DRUGS (2)
  1. LAMOTRIGINE [Suspect]
     Indication: CONVULSION
     Dosage: UNK
     Dates: start: 20110601
  2. GABAPENTIN [Suspect]
     Indication: CONVULSION
     Dosage: 100 MG, 3X/DAY
     Route: 048
     Dates: start: 20110621

REACTIONS (2)
  - VISION BLURRED [None]
  - SOMNOLENCE [None]
